FAERS Safety Report 25538426 (Version 4)
Quarter: 2025Q3

REPORT INFORMATION
  Report Type: Spontaneous
  Country: EU (occurrence: EU)
  Receive Date: 20250710
  Receipt Date: 20250903
  Transmission Date: 20251020
  Serious: Yes (Hospitalization, Other)
  Sender: CHIESI
  Company Number: EU-CHIESI-2025CHF04643

PATIENT
  Sex: Female
  Weight: 60 kg

DRUGS (19)
  1. FERRIPROX [Suspect]
     Active Substance: DEFERIPRONE
     Indication: Thalassaemia beta
     Dosage: 5 DOSAGE FORM, QD
     Route: 048
     Dates: end: 20250526
  2. FERRIPROX [Suspect]
     Active Substance: DEFERIPRONE
     Dosage: 3 DOSAGE FORM, QD
     Route: 048
     Dates: start: 20250704, end: 20250708
  3. FERRIPROX [Suspect]
     Active Substance: DEFERIPRONE
     Dosage: 5 DOSAGE FORM, QD
     Route: 048
     Dates: start: 20250708, end: 20250801
  4. FERRIPROX [Suspect]
     Active Substance: DEFERIPRONE
     Dosage: 3 DOSAGE FORM, QD
     Route: 048
     Dates: start: 20250801, end: 20250805
  5. SULFASALAZINE [Suspect]
     Active Substance: SULFASALAZINE
     Indication: Sacroiliitis
     Dosage: 1 DOSAGE FORM, QD
     Route: 048
     Dates: start: 20250403, end: 20250410
  6. SULFASALAZINE [Suspect]
     Active Substance: SULFASALAZINE
     Dosage: 2 DOSAGE FORM, QD
     Route: 048
     Dates: start: 20250410, end: 20250526
  7. CALCIUM [Concomitant]
     Active Substance: CALCIUM
     Indication: Product used for unknown indication
     Route: 065
     Dates: end: 20250526
  8. CALCIUM [Concomitant]
     Active Substance: CALCIUM
     Route: 065
     Dates: start: 20250602
  9. DESFERAL [Concomitant]
     Active Substance: DEFEROXAMINE MESYLATE
     Indication: Chelation therapy
     Dosage: UNK, QOW
     Route: 058
     Dates: end: 20250526
  10. DESFERAL [Concomitant]
     Active Substance: DEFEROXAMINE MESYLATE
     Dosage: UNK, QOW
     Route: 058
     Dates: start: 20250615, end: 20250805
  11. DESFERAL [Concomitant]
     Active Substance: DEFEROXAMINE MESYLATE
     Route: 058
     Dates: start: 20250805
  12. VITAMIN D3 [Concomitant]
     Active Substance: CHOLECALCIFEROL
     Indication: Product used for unknown indication
     Dosage: 800 INTERNATIONAL UNIT, QD
     Route: 065
     Dates: end: 20250526
  13. VITAMIN D3 [Concomitant]
     Active Substance: CHOLECALCIFEROL
     Dosage: 800 INTERNATIONAL UNIT, QD
     Route: 065
     Dates: start: 20250602
  14. ASPIRIN [Concomitant]
     Active Substance: ASPIRIN
     Indication: Product used for unknown indication
     Dosage: 100 MILLIGRAM, QD
     Route: 065
     Dates: start: 202205, end: 20250526
  15. ASPIRIN [Concomitant]
     Active Substance: ASPIRIN
     Dosage: 100 MILLIGRAM, QD
     Route: 065
     Dates: start: 20250602
  16. FOLIC ACID [Concomitant]
     Active Substance: FOLIC ACID
     Indication: Product used for unknown indication
     Dosage: 1 DOSAGE FORM, QD
     Route: 048
     Dates: end: 20250526
  17. FOLIC ACID [Concomitant]
     Active Substance: FOLIC ACID
     Dosage: 1 DOSAGE FORM, QD
     Route: 048
     Dates: start: 20250602
  18. BISOPROLOL FUMARATE [Concomitant]
     Active Substance: BISOPROLOL FUMARATE
     Indication: Product used for unknown indication
     Dosage: 0.25 MILLIGRAM, QD
     Route: 048
     Dates: start: 20250530
  19. BISOPROLOL FUMARATE [Concomitant]
     Active Substance: BISOPROLOL FUMARATE
     Dosage: 0.25 MILLIGRAM, QD
     Route: 048
     Dates: end: 20250526

REACTIONS (19)
  - Agranulocytosis [Recovered/Resolved]
  - Agranulocytosis [Recovered/Resolved]
  - Neutropenia [Recovered/Resolved]
  - Neutropenia [Recovered/Resolved]
  - Contraindicated product administered [Recovered/Resolved]
  - Product use issue [Not Recovered/Not Resolved]
  - Product use issue [Recovered/Resolved]
  - Drug interaction [Recovered/Resolved]
  - Cystitis [Recovered/Resolved]
  - Musculoskeletal injury [Recovered/Resolved]
  - Viral infection [Recovered/Resolved]
  - Streptococcal infection [Recovered/Resolved]
  - Abdominal distension [Recovered/Resolved]
  - Transaminases increased [Recovered/Resolved]
  - Sacroiliitis [Not Recovered/Not Resolved]
  - Upper respiratory tract infection [Recovered/Resolved]
  - Abdominal discomfort [Recovered/Resolved]
  - Nausea [Recovered/Resolved]
  - Vomiting [Recovered/Resolved]

NARRATIVE: CASE EVENT DATE: 20250101
